FAERS Safety Report 5103369-8 (Version None)
Quarter: 2006Q3

REPORT INFORMATION
  Report Type: 
  Country: None (occurrence: None)
  Receive Date: 20060908
  Receipt Date: 20060825
  Transmission Date: 20061208
  Serious: Yes (Hospitalization)
  Sender: FDA-Public Use
  Company Number: AT-2006-024585

PATIENT
  Age: 50 Year
  Sex: Male

DRUGS (1)
  1. BETAFERON (INTERFERON BETA - 1B)INJECTION, 250?G [Suspect]
     Dosage: SUBCUTANEOUS
     Route: 058

REACTIONS (2)
  - HERPES ZOSTER [None]
  - WHITE BLOOD CELL COUNT DECREASED [None]
